FAERS Safety Report 10228969 (Version 1)
Quarter: 2014Q2

REPORT INFORMATION
  Report Type: Spontaneous
  Country: US (occurrence: US)
  Receive Date: 20140610
  Receipt Date: 20140610
  Transmission Date: 20141212
  Serious: Yes (Hospitalization)
  Sender: FDA-Public Use
  Company Number: US-B.I. PHARMACEUTICALS,INC./RIDGEFIELD-2014-BI-25532BP

PATIENT
  Sex: Female
  Weight: 64 kg

DRUGS (5)
  1. SPIRIVA [Suspect]
     Indication: PRODUCT USED FOR UNKNOWN INDICATION
     Route: 055
  2. ATENOLOL [Concomitant]
     Dosage: 25 MG
     Route: 048
  3. FUROSEMIDE [Concomitant]
     Dosage: 40 MG
     Route: 048
  4. LISINOPRIL [Concomitant]
     Dosage: 20 MG
     Route: 048
  5. MULTI VITAMINS [Concomitant]
     Route: 065

REACTIONS (7)
  - Peripheral swelling [Not Recovered/Not Resolved]
  - Body height decreased [Not Recovered/Not Resolved]
  - Diabetes mellitus [Not Recovered/Not Resolved]
  - Blood cholesterol abnormal [Not Recovered/Not Resolved]
  - Dyspnoea [Not Recovered/Not Resolved]
  - Gait disturbance [Not Recovered/Not Resolved]
  - Visual impairment [Not Recovered/Not Resolved]
